FAERS Safety Report 6931985-7 (Version None)
Quarter: 2010Q3

REPORT INFORMATION
  Report Type: 
  Country: None (occurrence: None)
  Receive Date: 20100819
  Receipt Date: 20100816
  Transmission Date: 20110219
  Serious: Yes (Hospitalization)
  Sender: FDA-Public Use
  Company Number: ES-BRISTOL-MYERS SQUIBB COMPANY-15241946

PATIENT
  Age: 73 Year
  Sex: Male

DRUGS (10)
  1. COAPROVEL TABS 150MG/12.5MG [Suspect]
     Route: 048
     Dates: start: 20090101
  2. ACOVIL [Interacting]
     Dosage: TABS
     Route: 048
     Dates: start: 20090601, end: 20100504
  3. LACEROL [Concomitant]
     Dosage: LACEROL RETARD 120MG CAPS
     Route: 048
     Dates: end: 20100504
  4. ARTEDIL [Concomitant]
     Dosage: TABS
     Route: 048
  5. EMCONCOR [Concomitant]
     Dosage: TABS DOSE INCREASED
     Route: 048
  6. CARDYL [Concomitant]
     Dosage: TABS
     Route: 048
  7. CARDURA [Concomitant]
     Route: 048
  8. ISCOVER TABS [Concomitant]
     Route: 048
  9. HEMOVAS [Concomitant]
     Dosage: TABS
     Route: 048
  10. HUMALOG [Concomitant]
     Route: 058
     Dates: end: 20100504

REACTIONS (3)
  - DRUG INTERACTION [None]
  - HYPERKALAEMIA [None]
  - RENAL FAILURE ACUTE [None]
